FAERS Safety Report 8113815-3 (Version None)
Quarter: 2012Q1

REPORT INFORMATION
  Report Type: 
  Country: None (occurrence: None)
  Receive Date: 20120203
  Receipt Date: 20120126
  Transmission Date: 20120608
  Serious: Yes (Other)
  Sender: FDA-Public Use
  Company Number: US-PFIZER INC-2012024904

PATIENT
  Age: 68 Year
  Sex: Female

DRUGS (4)
  1. EXTRA STRENGTH TYLENOL [Concomitant]
     Indication: ARTHRITIS
  2. CELEBREX [Suspect]
     Indication: ARTHRITIS
     Dosage: UNK
  3. IBUPROFEN [Concomitant]
     Indication: ARTHRITIS
  4. NAPROXEN (ALEVE) [Concomitant]
     Indication: ARTHRITIS
     Dosage: ONE IN THE MORNING AND ANOTHER ONE AT 3 PM

REACTIONS (1)
  - MYOCARDIAL INFARCTION [None]
